FAERS Safety Report 22530158 (Version 1)
Quarter: 2023Q2

REPORT INFORMATION
  Report Type: Report from Study
  Country: PL (occurrence: PL)
  Receive Date: 20230607
  Receipt Date: 20230607
  Transmission Date: 20230722
  Serious: Yes (Hospitalization)
  Sender: FDA-Public Use
  Company Number: PL-MYLANLABS-2023M1058228

PATIENT
  Sex: Female

DRUGS (3)
  1. CLADRIBINE [Suspect]
     Active Substance: CLADRIBINE
     Indication: Relapsing multiple sclerosis
     Dosage: UNK, A CUMULATIVE DOSE OF 1.8 MG/KG (DIVIDED INTO 6 COURSES RECEIVE EVERY 5 WEEKS FOR 4-6 DAYS)
     Route: 058
  2. CLADRIBINE [Suspect]
     Active Substance: CLADRIBINE
     Dosage: UNK, ANNUAL DOSE OF 0.3 MG/KG OVER 4-6 DAYS
     Route: 058
  3. CLADRIBINE [Suspect]
     Active Substance: CLADRIBINE
     Dosage: UNK, RECEIVED CUMULATIVE DOSE OF 160MG DURING THE MAINTENANCE PHASE OF THERAPY
     Route: 058

REACTIONS (2)
  - Breast cancer [Recovered/Resolved]
  - Off label use [Recovered/Resolved]
